FAERS Safety Report 4423852-8 (Version None)
Quarter: 2004Q3

REPORT INFORMATION
  Report Type: 
  Country: None (occurrence: None)
  Receive Date: 20040715
  Receipt Date: 20040112
  Transmission Date: 20050211
  Serious: Yes (Hospitalization)
  Sender: FDA-Public Use
  Company Number: 2003191662US

PATIENT
  Age: 71 Year
  Sex: Male
  Weight: 97.5 kg

DRUGS (1)
  1. CELEBREX [Suspect]
     Indication: ARTHRITIS
     Dosage: 200 MG, QD, ORAL
     Route: 048
     Dates: start: 19990201, end: 19990801

REACTIONS (2)
  - HAEMATOCHEZIA [None]
  - HAEMORRHAGE [None]
